FAERS Safety Report 10708590 (Version 2)
Quarter: 2015Q1

REPORT INFORMATION
  Report Type: Report from Study
  Country: US (occurrence: US)
  Receive Date: 20150113
  Receipt Date: 20150123
  Transmission Date: 20150721
  Serious: Yes (Hospitalization, Other)
  Sender: FDA-Public Use
  Company Number: US-CELGENE-USA-2015010384

PATIENT
  Age: 54 Year
  Sex: Male
  Weight: 69.9 kg

DRUGS (21)
  1. SENNA-DOCUSATE [Concomitant]
     Indication: PRODUCT USED FOR UNKNOWN INDICATION
     Dosage: 8.6-50MG
     Route: 048
  2. ATORVASTATIN [Concomitant]
     Active Substance: ATORVASTATIN
     Indication: PRODUCT USED FOR UNKNOWN INDICATION
     Route: 048
  3. REVLIMID [Suspect]
     Active Substance: LENALIDOMIDE
     Indication: PLASMA CELL MYELOMA
     Dosage: 25 MILLIGRAM
     Route: 048
     Dates: start: 20141209, end: 20141222
  4. COLCHICINE. [Concomitant]
     Active Substance: COLCHICINE
     Indication: PRODUCT USED FOR UNKNOWN INDICATION
     Dosage: 800 MILLIGRAM
     Route: 048
  5. IBUPROFEN. [Concomitant]
     Active Substance: IBUPROFEN
     Indication: PRODUCT USED FOR UNKNOWN INDICATION
     Route: 048
  6. DEXAMETHASONE. [Suspect]
     Active Substance: DEXAMETHASONE
     Indication: PLASMA CELL MYELOMA
     Route: 048
  7. LOVENOX [Concomitant]
     Active Substance: ENOXAPARIN SODIUM
     Indication: PRODUCT USED FOR UNKNOWN INDICATION
     Dosage: 1.2 MILLIGRAM
     Route: 058
  8. NACL [Concomitant]
     Active Substance: SODIUM CHLORIDE
     Indication: PRODUCT USED FOR UNKNOWN INDICATION
     Route: 041
  9. VITAMIN B COMPLEX [Concomitant]
     Active Substance: CYANOCOBALAMIN\DEXPANTHENOL\NIACINAMIDE\PYRIDOXINE HYDROCHLORIDE\RIBOFLAVIN 5^-PHOSPHATE SODIUM\THIAMINE HYDROCHLORIDE\VITAMIN B COMPLEX
     Indication: PRODUCT USED FOR UNKNOWN INDICATION
     Route: 048
  10. AZITHROMYCIN [Concomitant]
     Active Substance: AZITHROMYCIN ANHYDROUS
     Indication: PRODUCT USED FOR UNKNOWN INDICATION
     Route: 065
  11. ENOXAPARIN [Concomitant]
     Active Substance: ENOXAPARIN
     Indication: PRODUCT USED FOR UNKNOWN INDICATION
     Dosage: 120MG/0.8ML
     Route: 058
  12. OXYCODONE HYDROCHLORIDE IR [Concomitant]
     Active Substance: OXYCODONE HYDROCHLORIDE
     Indication: PRODUCT USED FOR UNKNOWN INDICATION
     Dosage: 1800 MILLILITER
     Route: 048
  13. VELCADE [Suspect]
     Active Substance: BORTEZOMIB
     Indication: PLASMA CELL MYELOMA
     Route: 041
     Dates: start: 20141209, end: 20141219
  14. POLYETHYLENE GLYCOL [Concomitant]
     Active Substance: POLYETHYLENE GLYCOLS
     Indication: PRODUCT USED FOR UNKNOWN INDICATION
     Route: 048
  15. HYDROMORPHONE [Concomitant]
     Active Substance: HYDROMORPHONE
     Indication: PRODUCT USED FOR UNKNOWN INDICATION
     Dosage: 0.2-1MG
     Route: 041
  16. OXYCODONE HCL CONTROLLED-RELEASE [Concomitant]
     Active Substance: OXYCODONE HYDROCHLORIDE
     Indication: PRODUCT USED FOR UNKNOWN INDICATION
     Route: 048
  17. CYCLOPHOSPHAMIDE. [Concomitant]
     Active Substance: CYCLOPHOSPHAMIDE
     Indication: PRODUCT USED FOR UNKNOWN INDICATION
     Route: 065
  18. OMEPRAZOLE. [Concomitant]
     Active Substance: OMEPRAZOLE
     Indication: PRODUCT USED FOR UNKNOWN INDICATION
     Route: 048
  19. CHOLECALCIFEROL [Concomitant]
     Active Substance: CHOLECALCIFEROL
     Indication: PRODUCT USED FOR UNKNOWN INDICATION
     Dosage: 400 UNIT
     Route: 048
  20. VITAMIN E [Concomitant]
     Active Substance: .ALPHA.-TOCOPHEROL
     Indication: PRODUCT USED FOR UNKNOWN INDICATION
     Dosage: 400 UNIT
     Route: 048
  21. ACYCLOVIR. [Concomitant]
     Active Substance: ACYCLOVIR
     Indication: PRODUCT USED FOR UNKNOWN INDICATION
     Route: 048

REACTIONS (3)
  - Deep vein thrombosis [Unknown]
  - Pericarditis [Unknown]
  - Coronary artery disease [Unknown]

NARRATIVE: CASE EVENT DATE: 20141223
